FAERS Safety Report 7997654-X (Version None)
Quarter: 2011Q4

REPORT INFORMATION
  Report Type: 
  Country: None (occurrence: None)
  Receive Date: 20111221
  Receipt Date: 20111213
  Transmission Date: 20120403
  Serious: Yes (Other)
  Sender: FDA-Public Use
  Company Number: US-BAYER-2011-034713

PATIENT
  Age: 30 Year
  Sex: Female
  Weight: 79.365 kg

DRUGS (10)
  1. YASMIN [Suspect]
     Dosage: UNK
     Dates: start: 20081201, end: 20081201
  2. DROSPIRENONE AND ETHINYL ESTRADIOL [Suspect]
     Dosage: UNK
     Dates: start: 20070101, end: 20071201
  3. FIORICET [Concomitant]
     Indication: HEADACHE
     Route: 048
  4. PREVACID [Concomitant]
     Route: 048
  5. YASMIN [Suspect]
     Dosage: UNK
     Dates: start: 20070101, end: 20071201
  6. DROSPIRENONE AND ETHINYL ESTRADIOL [Suspect]
     Dosage: UNK
     Dates: start: 20081201, end: 20081201
  7. YASMIN [Suspect]
     Dosage: UNK
     Dates: start: 20030601, end: 20030601
  8. DROSPIRENONE AND ETHINYL ESTRADIOL [Suspect]
     Dosage: UNK
     Dates: start: 20041201, end: 20041201
  9. YASMIN [Suspect]
     Dosage: UNK
     Dates: start: 20041201, end: 20041201
  10. DROSPIRENONE AND ETHINYL ESTRADIOL [Suspect]
     Dosage: UNK
     Dates: start: 20030601, end: 20030601

REACTIONS (6)
  - BILIARY DYSKINESIA [None]
  - GALLBLADDER NON-FUNCTIONING [None]
  - PAIN [None]
  - CHOLECYSTITIS CHRONIC [None]
  - ANXIETY [None]
  - ANHEDONIA [None]
